FAERS Safety Report 7375763-6 (Version None)
Quarter: 2011Q1

REPORT INFORMATION
  Report Type: 
  Country: None (occurrence: None)
  Receive Date: 20110325
  Receipt Date: 20110323
  Transmission Date: 20110831
  Serious: Yes (Disabling)
  Sender: FDA-Public Use
  Company Number: FI-ABBOTT-11P-055-0713904-00

PATIENT
  Sex: Female

DRUGS (6)
  1. OXIKLORIN [Concomitant]
     Indication: RHEUMATOID ARTHRITIS
     Dosage: 300 MG PER DAY
     Route: 048
  2. HUMIRA [Suspect]
     Indication: RHEUMATOID ARTHRITIS
     Route: 058
     Dates: start: 20041201, end: 20100801
  3. SALAZOPYRIN EN [Concomitant]
     Indication: RHEUMATOID ARTHRITIS
     Dosage: 2000 MG PER DAY
     Route: 048
  4. TREXAN [Concomitant]
     Indication: RHEUMATOID ARTHRITIS
     Route: 058
  5. PREDNISONE [Concomitant]
     Indication: RHEUMATOID ARTHRITIS
     Dosage: 5 MG PER DAY
     Route: 048
  6. MOBIC [Concomitant]
     Indication: RHEUMATOID ARTHRITIS
     Dosage: 30 MG PER DAY
     Route: 048

REACTIONS (2)
  - CHRONIC LYMPHOCYTIC LEUKAEMIA [None]
  - LEUKOCYTOSIS [None]
